FAERS Safety Report 7564856-6 (Version None)
Quarter: 2011Q2

REPORT INFORMATION
  Report Type: 
  Country: None (occurrence: None)
  Receive Date: 20110622
  Receipt Date: 20110124
  Transmission Date: 20111010
  Serious: Yes (Other)
  Sender: FDA-Public Use
  Company Number: US-MYLANLABS-2011S1000628

PATIENT
  Age: 37 Year
  Sex: Male

DRUGS (5)
  1. OMEPRAZOLE [Concomitant]
  2. CLOZAPINE [Suspect]
     Indication: PSYCHOTIC DISORDER
     Route: 048
     Dates: start: 20071108
  3. RISPERDAL [Concomitant]
     Route: 030
  4. LOVASTATIN [Concomitant]
  5. COLACE [Concomitant]

REACTIONS (1)
  - GRANULOCYTOPENIA [None]
